FAERS Safety Report 19822021 (Version 1)
Quarter: 2021Q3

REPORT INFORMATION
  Report Type: Spontaneous
  Country: US (occurrence: US)
  Receive Date: 20210913
  Receipt Date: 20210913
  Transmission Date: 20211014
  Serious: Yes (Life-Threatening, Disabling, Other)
  Sender: FDA-Public Use
  Company Number: None

PATIENT
  Age: 35 Year
  Sex: Female
  Weight: 94.5 kg

DRUGS (13)
  1. LEUPRORELIN [Suspect]
     Active Substance: LEUPROLIDE ACETATE
     Indication: ENDOMETRIOSIS
     Dosage: ?          OTHER FREQUENCY:3 MONTH OR 1 MONTH;?
     Route: 030
  2. VITAMIN D [Concomitant]
     Active Substance: VITAMIN D NOS
  3. OMEPRAZOLE. [Concomitant]
     Active Substance: OMEPRAZOLE
  4. CALCIUM [Concomitant]
     Active Substance: CALCIUM
  5. ZYRTEC [Concomitant]
     Active Substance: CETIRIZINE HYDROCHLORIDE
  6. GABAPENTIN. [Concomitant]
     Active Substance: GABAPENTIN
  7. TYLENOL [Concomitant]
     Active Substance: ACETAMINOPHEN
  8. FAMOTIDINE. [Concomitant]
     Active Substance: FAMOTIDINE
  9. MEDICAL CANNABIS [Concomitant]
     Active Substance: CANNABIS SATIVA SUBSP. INDICA TOP
  10. BELLADONNA AND OPIUM SUPPOSITORIES [Concomitant]
  11. EPI PENS [Concomitant]
  12. INHALER [Concomitant]
     Active Substance: UNSPECIFIED INGREDIENT
  13. ZOFRAN [Concomitant]
     Active Substance: ONDANSETRON HYDROCHLORIDE

REACTIONS (8)
  - Confusional state [None]
  - Brain injury [None]
  - Infertility [None]
  - Migraine [None]
  - Bone loss [None]
  - Osteoporosis [None]
  - Fibromyalgia [None]
  - Tooth loss [None]

NARRATIVE: CASE EVENT DATE: 20200501
